FAERS Safety Report 5366352-3 (Version None)
Quarter: 2007Q2

REPORT INFORMATION
  Report Type: 
  Country: None (occurrence: None)
  Receive Date: 20070620
  Receipt Date: 20070620
  Transmission Date: 20071010
  Serious: Yes (Hospitalization)
  Sender: FDA-Public Use
  Company Number: None

PATIENT
  Age: 45 Year
  Sex: Female
  Weight: 65.7716 kg

DRUGS (1)
  1. GADOLINIUM [Suspect]

REACTIONS (8)
  - ARTHRALGIA [None]
  - DEPRESSED MOOD [None]
  - DEPRESSION [None]
  - FATIGUE [None]
  - JOINT CONTRACTURE [None]
  - MUSCLE CONTRACTURE [None]
  - MUSCULAR WEAKNESS [None]
  - VASCULAR OPERATION [None]
